FAERS Safety Report 4366058-3 (Version None)
Quarter: 2004Q2

REPORT INFORMATION
  Report Type: 
  Country: None (occurrence: None)
  Receive Date: 20040527
  Receipt Date: 20040513
  Transmission Date: 20050107
  Serious: Yes (Hospitalization)
  Sender: FDA-Public Use
  Company Number: 200411531EU

PATIENT
  Age: 91 Year
  Sex: Female

DRUGS (4)
  1. LASIX [Suspect]
     Indication: ESSENTIAL HYPERTENSION
     Route: 048
     Dates: start: 20040101, end: 20040426
  2. ZESTRIL [Suspect]
     Indication: ESSENTIAL HYPERTENSION
     Route: 048
     Dates: start: 20040101, end: 20040426
  3. MEPRAL [Concomitant]
     Indication: GASTRIC ULCER
     Route: 048
  4. VIOXX [Concomitant]
     Indication: PAIN
     Route: 048

REACTIONS (5)
  - COLD SWEAT [None]
  - DEHYDRATION [None]
  - HYPOTENSION [None]
  - RENAL FAILURE ACUTE [None]
  - TACHYPNOEA [None]
